FAERS Safety Report 6252344-9 (Version None)
Quarter: 2009Q3

REPORT INFORMATION
  Report Type: 
  Country: None (occurrence: None)
  Receive Date: 20090701
  Receipt Date: 20090617
  Transmission Date: 20100115
  Serious: Yes (Other)
  Sender: FDA-Public Use
  Company Number: US-RANBAXY-2009US-24944

PATIENT

DRUGS (30)
  1. ZIDOVUDINE [Suspect]
     Indication: HIV INFECTION
     Dosage: UNK, UNK
     Route: 065
  2. ZIDOVUDINE [Suspect]
     Indication: PNEUMOCYSTIS JIROVECI INFECTION
  3. COTRIMOXAZOLE [Suspect]
     Indication: PNEUMOCYSTIS JIROVECI INFECTION
     Route: 065
  4. COTRIMOXAZOLE [Suspect]
     Indication: HIV INFECTION
  5. INDINIVIR SULFATE [Suspect]
     Indication: PNEUMOCYSTIS JIROVECI INFECTION
     Route: 065
  6. INDINIVIR SULFATE [Suspect]
     Indication: HIV INFECTION
  7. LAMIVUDINE [Suspect]
     Indication: PNEUMOCYSTIS JIROVECI INFECTION
     Route: 065
  8. LAMIVUDINE [Suspect]
     Indication: HIV INFECTION
  9. NEVIRAPINE [Suspect]
     Indication: PNEUMOCYSTIS JIROVECI INFECTION
     Route: 065
  10. NEVIRAPINE [Suspect]
     Indication: HIV INFECTION
  11. STAVUDINE [Suspect]
     Indication: PNEUMOCYSTIS JIROVECI INFECTION
     Route: 065
  12. STAVUDINE [Suspect]
     Indication: HIV INFECTION
  13. ABACAVIR SULFATE [Suspect]
     Indication: PNEUMOCYSTIS JIROVECI INFECTION
     Route: 065
  14. ABACAVIR SULFATE [Suspect]
     Indication: HIV INFECTION
  15. TENOFOVIR DISOPROXIL FUMARATE [Suspect]
     Indication: PNEUMOCYSTIS JIROVECI INFECTION
     Dosage: UNK
     Route: 065
     Dates: start: 20020901
  16. TENOFOVIR DISOPROXIL FUMARATE [Suspect]
     Indication: HIV INFECTION
  17. FOSAMPRENAVIR [Suspect]
     Indication: PNEUMOCYSTIS JIROVECI INFECTION
     Route: 065
  18. FOSAMPRENAVIR [Suspect]
     Indication: HIV INFECTION
  19. RITONAVIR [Suspect]
     Indication: PNEUMOCYSTIS JIROVECI INFECTION
     Route: 065
  20. RITONAVIR [Suspect]
     Indication: HIV INFECTION
  21. DIDANOSINE [Suspect]
     Indication: HIV INFECTION
  22. DIDANOSINE [Suspect]
     Indication: PNEUMOCYSTIS JIROVECI INFECTION
  23. ATORVASTATIN CALCIUM [Concomitant]
     Indication: BLOOD CHOLESTEROL INCREASED
  24. ATORVASTATIN CALCIUM [Concomitant]
     Indication: BLOOD TRIGLYCERIDES INCREASED
  25. PRAVASTATIN [Concomitant]
     Indication: BLOOD CHOLESTEROL INCREASED
  26. PRAVASTATIN [Concomitant]
     Indication: BLOOD TRIGLYCERIDES INCREASED
  27. FENOFIBRATE [Concomitant]
     Indication: LIPIDS INCREASED
  28. EMTRICITABINE [Suspect]
     Indication: DRUG USE FOR UNKNOWN INDICATION
  29. EPZICOM [Suspect]
     Indication: PNEUMOCYSTIS JIROVECI INFECTION
  30. EPZICOM [Suspect]
     Indication: HIV INFECTION

REACTIONS (11)
  - BLOOD CHOLESTEROL INCREASED [None]
  - BLOOD TRIGLYCERIDES INCREASED [None]
  - DYSLIPIDAEMIA [None]
  - FATIGUE [None]
  - INCREASED APPETITE [None]
  - LIPIDS INCREASED [None]
  - LIPODYSTROPHY ACQUIRED [None]
  - SLEEP APNOEA SYNDROME [None]
  - SLEEP DISORDER [None]
  - SOMNOLENCE [None]
  - WEIGHT INCREASED [None]
